FAERS Safety Report 4457484-2 (Version None)
Quarter: 2004Q3

REPORT INFORMATION
  Report Type: 
  Country: None (occurrence: None)
  Receive Date: 20040922
  Receipt Date: 20040913
  Transmission Date: 20050211
  Serious: Yes (Other)
  Sender: FDA-Public Use
  Company Number: 2004062018

PATIENT
  Age: 76 Year
  Sex: Male
  Weight: 96.1626 kg

DRUGS (7)
  1. ACCUPRIL [Suspect]
     Indication: HYPERTENSION
     Dosage: 10 MG (10 MG, 1 IN  1 D), ORAL
     Route: 048
     Dates: start: 20040101
  2. BENADRYL [Suspect]
     Indication: PRURITUS
     Dosage: SEE IMAGE
     Route: 042
     Dates: start: 20040801
  3. BENADRYL [Suspect]
     Indication: PRURITUS
     Dosage: SEE IMAGE
     Route: 042
     Dates: start: 20040830
  4. ACETYLSALICYLIC ACID (ACETYLSALICYCLIC ACID) [Concomitant]
  5. FINASTERIDE [Concomitant]
  6. TERAZOSIN HYDROCHLORIDE [Concomitant]
  7. ACETAMINOPHEN [Concomitant]

REACTIONS (5)
  - ARTHROPOD STING [None]
  - BLOOD PRESSURE SYSTOLIC ABNORMAL [None]
  - DEHYDRATION [None]
  - LOSS OF CONSCIOUSNESS [None]
  - PRURITUS [None]
